FAERS Safety Report 23418990 (Version 1)
Quarter: 2024Q1

REPORT INFORMATION
  Report Type: Spontaneous
  Country: US (occurrence: US)
  Receive Date: 20240118
  Receipt Date: 20240118
  Transmission Date: 20240410
  Serious: No
  Sender: FDA-Public Use
  Company Number: US-JNJFOC-20231278848

PATIENT
  Sex: Female

DRUGS (1)
  1. ZYRTEC [Suspect]
     Active Substance: CETIRIZINE HYDROCHLORIDE
     Indication: Antiallergic therapy
     Dosage: MY DOCTOR WANTS ME TO USE TWO TABLETS BECAUSE I TAKE THEM AT NIGHT AND IT WEARS OFF BY MORNING
     Route: 065

REACTIONS (2)
  - Prescribed overdose [Unknown]
  - Off label use [Unknown]
